FAERS Safety Report 23485794 (Version 1)
Quarter: 2024Q1

REPORT INFORMATION
  Report Type: Spontaneous
  Country: US (occurrence: US)
  Receive Date: 20240206
  Receipt Date: 20240206
  Transmission Date: 20240410
  Serious: Yes (Hospitalization)
  Sender: FDA-Public Use
  Company Number: US-AUROBINDO-AUR-APL-2023-042688

PATIENT
  Age: 62 Year
  Sex: Female
  Weight: 93.8 kg

DRUGS (15)
  1. DULOXETINE [Suspect]
     Active Substance: DULOXETINE
     Indication: Arthralgia
     Dosage: 30 MILLIGRAM, ONCE A DAY (ONLY 2 CAPSULES WERE CONSUMED)
     Route: 048
     Dates: start: 20230527, end: 20230528
  2. DULOXETINE [Suspect]
     Active Substance: DULOXETINE
     Dosage: 30 MILLIGRAM, ONCE A DAY
     Route: 048
     Dates: start: 20230528
  3. DULOXETINE [Suspect]
     Active Substance: DULOXETINE
     Dosage: 30 MILLIGRAM, ONCE A DAY
     Route: 048
     Dates: start: 20230529
  4. MELOXICAM [Concomitant]
     Active Substance: MELOXICAM
     Indication: Product used for unknown indication
     Dosage: 50 MILLIGRAM, ONCE A DAY(MORNING)
     Route: 065
  5. VALSARTAN [Concomitant]
     Active Substance: VALSARTAN
     Indication: Product used for unknown indication
     Dosage: 320 MILLIGRAM, ONCE A DAY(AT NIGHT)
     Route: 065
  6. BISOPROLOL FUMARATE [Concomitant]
     Active Substance: BISOPROLOL FUMARATE
     Indication: Product used for unknown indication
     Dosage: 10 MILLIGRAM
     Route: 065
  7. BISOPROLOL FUMARATE [Concomitant]
     Active Substance: BISOPROLOL FUMARATE
     Dosage: 2 MILLIGRAM, ONCE A DAY(MORNING)
     Route: 065
  8. FUROSEMIDE [Concomitant]
     Active Substance: FUROSEMIDE
     Indication: Prophylaxis
     Dosage: 20 MILLIGRAM, TWO TIMES A DAY
     Route: 065
  9. FLONASE [Concomitant]
     Active Substance: FLUTICASONE PROPIONATE
     Indication: Product used for unknown indication
     Dosage: UNK(01-02 SPRAYS IN EACH NOSTRIL AT NIGHT)
     Route: 045
  10. MAGNESIUM [Concomitant]
     Active Substance: MAGNESIUM
     Indication: Product used for unknown indication
     Dosage: 500 MILLIGRAM, ONCE A DAY(MORNING)
     Route: 065
  11. FISH OIL [Concomitant]
     Active Substance: FISH OIL
     Indication: Product used for unknown indication
     Dosage: 300 MILLIGRAM, TWO TIMES A DAY
     Route: 065
  12. CALCIUM CARBONATE\CHOLECALCIFEROL [Concomitant]
     Active Substance: CALCIUM CARBONATE\CHOLECALCIFEROL
     Indication: Product used for unknown indication
     Dosage: UNK, TWO TIMES A DAY
     Route: 065
  13. Triple Strength Glucosamine Chondroitin MSM [Concomitant]
     Indication: Product used for unknown indication
     Dosage: UNK
     Route: 065
  14. VITAMIN D [Concomitant]
     Active Substance: VITAMIN D NOS
     Indication: Product used for unknown indication
     Dosage: UNK, ONCE A DAY
     Route: 065
  15. POTASSIUM [Concomitant]
     Active Substance: POTASSIUM
     Indication: Product used for unknown indication
     Dosage: 99 MILLIGRAM, ONCE A DAY
     Route: 065

REACTIONS (8)
  - Hypertension [Not Recovered/Not Resolved]
  - Feeling abnormal [Unknown]
  - Dizziness [Recovered/Resolved]
  - Nausea [Recovered/Resolved]
  - Headache [Recovered/Resolved]
  - Blood pressure fluctuation [Unknown]
  - Gout [Unknown]
  - Product formulation issue [Unknown]

NARRATIVE: CASE EVENT DATE: 20230528
